FAERS Safety Report 5307007-0 (Version None)
Quarter: 2007Q2

REPORT INFORMATION
  Report Type: 
  Country: None (occurrence: None)
  Receive Date: 20070418
  Receipt Date: 20070413
  Transmission Date: 20071010
  Serious: Yes (Hospitalization)
  Sender: FDA-Public Use
  Company Number: THQ2007A00310

PATIENT

DRUGS (1)
  1. ACTOS [Suspect]
     Indication: DIABETES MELLITUS NON-INSULIN-DEPENDENT
     Dosage: UNK. PER ORAL
     Route: 048

REACTIONS (3)
  - HYPERTENSION [None]
  - OEDEMA [None]
  - PROTEINURIA [None]
